FAERS Safety Report 23021395 (Version 1)
Quarter: 2023Q4

REPORT INFORMATION
  Report Type: Spontaneous
  Country: CN (occurrence: CN)
  Receive Date: 20231003
  Receipt Date: 20231003
  Transmission Date: 20240110
  Serious: Yes (Other)
  Sender: FDA-Public Use
  Company Number: CN-UCBSA-2023046799

PATIENT
  Age: 3 Year
  Sex: Male

DRUGS (1)
  1. LEVETIRACETAM [Suspect]
     Active Substance: LEVETIRACETAM
     Indication: Seizure
     Dosage: 0.125 GRAM, 2X/DAY (BID) (125 MILLIGRAM TWICE DAILY)

REACTIONS (5)
  - Seizure [Recovering/Resolving]
  - Eczema [Unknown]
  - Vomiting [Unknown]
  - Off label use [Unknown]
  - Treatment noncompliance [Unknown]
